FAERS Safety Report 5541969-1 (Version None)
Quarter: 2007Q4

REPORT INFORMATION
  Report Type: 
  Country: None (occurrence: None)
  Receive Date: 20071210
  Receipt Date: 20071203
  Transmission Date: 20080405
  Serious: Yes (Hospitalization, Other)
  Sender: FDA-Public Use
  Company Number: AU-AVENTIS-200721150GDDC

PATIENT
  Age: 79 Year

DRUGS (10)
  1. LANTUS [Suspect]
     Route: 058
     Dates: start: 20061202
  2. AUTOPEN INSULIN INJECTION PEN [Suspect]
  3. SERETIDE [Concomitant]
  4. FUROSEMIDE [Concomitant]
  5. PANTOPRAZOLE SODIUM [Concomitant]
  6. MICARDIS [Concomitant]
  7. ASPIRIN [Concomitant]
  8. BETALOC [Concomitant]
  9. MEGAFOL [Concomitant]
  10. CRANBERRY [Concomitant]

REACTIONS (1)
  - MYOCARDIAL INFARCTION [None]
